FAERS Safety Report 4793782-0 (Version None)
Quarter: 2005Q4

REPORT INFORMATION
  Report Type: 
  Country: None (occurrence: None)
  Receive Date: 20051006
  Receipt Date: 20050922
  Transmission Date: 20060501
  Serious: Yes (Hospitalization, Disabling)
  Sender: FDA-Public Use
  Company Number: CHNY2005US01824

PATIENT
  Age: 43 Year
  Sex: Male

DRUGS (1)
  1. BUCKLEY'S DM COUGH SUPPRESSANT + DECONGESTANT (NCH) (PSEUDOEPHEDRINE H [Suspect]
     Dosage: ONCE/SINGLE, ORAL
     Route: 048
     Dates: start: 20050107

REACTIONS (4)
  - ANAPHYLACTIC SHOCK [None]
  - INJURY [None]
  - RENAL FAILURE [None]
  - WHEELCHAIR USER [None]
